FAERS Safety Report 25124248 (Version 1)
Quarter: 2025Q1

REPORT INFORMATION
  Report Type: Spontaneous
  Country: SK (occurrence: SK)
  Receive Date: 20250326
  Receipt Date: 20250326
  Transmission Date: 20250408
  Serious: Yes (Other)
  Sender: AMGEN
  Company Number: SK-AMGEN-SVKSP2025054980

PATIENT
  Age: 70 Year
  Sex: Female

DRUGS (2)
  1. PROLIA [Suspect]
     Active Substance: DENOSUMAB
     Indication: Osteoporosis
     Route: 065
  2. EDETIC ACID [Concomitant]
     Active Substance: EDETIC ACID
     Route: 065

REACTIONS (7)
  - Blindness unilateral [Unknown]
  - Ulcerative keratitis [Unknown]
  - Keratitis bacterial [Unknown]
  - Glaucoma [Unknown]
  - Cataract [Unknown]
  - Retinal vein occlusion [Unknown]
  - Eye injury [Unknown]
